FAERS Safety Report 25517502 (Version 1)
Quarter: 2025Q3

REPORT INFORMATION
  Report Type: Other
  Country: CN (occurrence: CN)
  Receive Date: 20250704
  Receipt Date: 20250704
  Transmission Date: 20251020
  Serious: Yes (Death, Hospitalization)
  Sender: ANI
  Company Number: CN-ANIPHARMA-023365

PATIENT
  Age: 68 Year
  Sex: Female

DRUGS (16)
  1. FLUCONAZOLE [Suspect]
     Active Substance: FLUCONAZOLE
     Indication: Urinary tract infection
     Dates: start: 20231011
  2. PHLOROGLUCINOL [Concomitant]
     Active Substance: PHLOROGLUCINOL
     Indication: Symptomatic treatment
  3. BUCINNAZINE [Concomitant]
     Active Substance: BUCINNAZINE
     Indication: Analgesic therapy
  4. PIPERACILLIN SODIUM\TAZOBACTAM SODIUM [Concomitant]
     Active Substance: PIPERACILLIN SODIUM\TAZOBACTAM SODIUM
     Indication: Evidence based treatment
  5. CASPOFUNGIN [Concomitant]
     Active Substance: CASPOFUNGIN
     Indication: Urinary tract infection
     Dates: start: 20231015
  6. VORICONAZOLE [Concomitant]
     Active Substance: VORICONAZOLE
     Indication: Urinary tract infection
  7. AMPHOTERICIN B [Concomitant]
     Active Substance: AMPHOTERICIN B
     Indication: Urinary tract infection
     Dates: start: 20231118, end: 202312
  8. FLUCYTOSINE [Concomitant]
     Active Substance: FLUCYTOSINE
     Indication: Urinary tract infection
     Dates: start: 20231202, end: 202312
  9. MORPHINE [Concomitant]
     Active Substance: MORPHINE
     Indication: Analgesic therapy
  10. CASPOFUNGIN [Concomitant]
     Active Substance: CASPOFUNGIN
     Indication: Urinary tract infection
     Dates: start: 20231016
  11. CASPOFUNGIN [Concomitant]
     Active Substance: CASPOFUNGIN
     Indication: Haematological infection
     Dates: start: 20231016
  12. FLUCYTOSINE [Concomitant]
     Active Substance: FLUCYTOSINE
     Indication: Haematological infection
     Dates: start: 20231202, end: 202312
  13. AMPHOTERICIN B [Concomitant]
     Active Substance: AMPHOTERICIN B
     Indication: Haematological infection
     Dates: start: 20231118, end: 202312
  14. VORICONAZOLE [Concomitant]
     Active Substance: VORICONAZOLE
     Indication: Haematological infection
  15. CASPOFUNGIN [Concomitant]
     Active Substance: CASPOFUNGIN
     Indication: Haematological infection
     Dates: start: 20231015
  16. FLUCONAZOLE [Suspect]
     Active Substance: FLUCONAZOLE
     Indication: Haematological infection
     Dates: start: 20231011

REACTIONS (1)
  - Treatment failure [Fatal]

NARRATIVE: CASE EVENT DATE: 20231001
